FAERS Safety Report 10103525 (Version 1)
Quarter: 2014Q2

REPORT INFORMATION
  Report Type: Spontaneous
  Country: US (occurrence: US)
  Receive Date: 20140424
  Receipt Date: 20140424
  Transmission Date: 20141212
  Serious: No
  Sender: FDA-Public Use
  Company Number: US-BRISTOL-MYERS SQUIBB COMPANY-20497160

PATIENT
  Age: 79 Year
  Sex: Male
  Weight: 68.03 kg

DRUGS (4)
  1. ELIQUIS [Suspect]
     Dates: start: 20140201
  2. LISINOPRIL [Concomitant]
  3. AVODART [Concomitant]
  4. LORAZEPAM [Concomitant]

REACTIONS (3)
  - Pain in extremity [Unknown]
  - Peripheral swelling [Unknown]
  - Rash pruritic [Not Recovered/Not Resolved]
